FAERS Safety Report 8134873-6 (Version None)
Quarter: 2012Q1

REPORT INFORMATION
  Report Type: 
  Country: None (occurrence: None)
  Receive Date: 20120214
  Receipt Date: 20120203
  Transmission Date: 20120608
  Serious: Yes (Hospitalization)
  Sender: FDA-Public Use
  Company Number: JP-EISAI INC-E7389-02037-CLI-JP

PATIENT
  Sex: Female
  Weight: 50 kg

DRUGS (11)
  1. HALAVEN [Suspect]
     Indication: METASTASES TO BREAST
  2. HALAVEN [Suspect]
     Indication: METASTASES TO LUNG
  3. FAMOTIDINE [Concomitant]
     Route: 048
  4. HALAVEN [Suspect]
     Indication: BREAST CANCER
     Route: 041
     Dates: start: 20110812
  5. RISEDRONATE SODIUM [Concomitant]
     Route: 048
  6. HALAVEN [Suspect]
     Indication: METASTASES TO LIVER
  7. HALAVEN [Suspect]
     Indication: METASTASES TO SKIN
  8. DECADRON [Concomitant]
     Route: 041
  9. URSO 250 [Concomitant]
     Route: 048
  10. BIO-THREE [Concomitant]
     Route: 048
  11. HALAVEN [Suspect]
     Indication: METASTASES TO LYMPH NODES

REACTIONS (1)
  - C-REACTIVE PROTEIN INCREASED [None]
